FAERS Safety Report 5341902-1 (Version None)
Quarter: 2007Q2

REPORT INFORMATION
  Report Type: 
  Country: None (occurrence: None)
  Receive Date: 20070601
  Receipt Date: 20070521
  Transmission Date: 20071010
  Serious: Yes (Hospitalization)
  Sender: FDA-Public Use
  Company Number: US-ELI_LILLY_AND_COMPANY-US200705005268

PATIENT
  Age: 82 Year
  Sex: Female
  Weight: 48.526 kg

DRUGS (3)
  1. FORTEO [Suspect]
     Dosage: UNK D/F, UNK
     Dates: start: 20061101, end: 20070101
  2. FORTEO [Suspect]
     Dosage: UNK D/F, UNK
     Dates: start: 20070101
  3. CALTRATE PLUS [Concomitant]
     Dosage: UNK, UNK
     Dates: end: 20070501

REACTIONS (19)
  - ABDOMINAL PAIN UPPER [None]
  - BLOOD PRESSURE INCREASED [None]
  - COUGH [None]
  - DEHYDRATION [None]
  - DIARRHOEA [None]
  - DYSPHAGIA [None]
  - DYSPHONIA [None]
  - FATIGUE [None]
  - GASTRIC DISORDER [None]
  - GASTRIC PH DECREASED [None]
  - INJECTION SITE BRUISING [None]
  - INJECTION SITE HAEMORRHAGE [None]
  - MALAISE [None]
  - PHARYNGOLARYNGEAL PAIN [None]
  - RENAL DISORDER [None]
  - SNEEZING [None]
  - SOMNOLENCE [None]
  - STOMACH DISCOMFORT [None]
  - VOMITING [None]
